FAERS Safety Report 8387306-9 (Version None)
Quarter: 2012Q2

REPORT INFORMATION
  Report Type: 
  Country: None (occurrence: None)
  Receive Date: 20120525
  Receipt Date: 20120511
  Transmission Date: 20120825
  Serious: Yes (Hospitalization, Other)
  Sender: FDA-Public Use
  Company Number: US-ROCHE-789900

PATIENT
  Sex: Male
  Weight: 90.8 kg

DRUGS (1)
  1. ACCUTANE [Suspect]
     Indication: PRODUCT USED FOR UNKNOWN INDICATION
     Route: 065
     Dates: start: 19880226, end: 19890101

REACTIONS (14)
  - LIP DRY [None]
  - INFLAMMATORY BOWEL DISEASE [None]
  - DRY SKIN [None]
  - STOMATITIS [None]
  - INTESTINAL OBSTRUCTION [None]
  - DERMATITIS CONTACT [None]
  - ANAL FISSURE [None]
  - COLITIS ULCERATIVE [None]
  - RECTAL POLYP [None]
  - HAEMORRHOIDS [None]
  - POUCHITIS [None]
  - DEPRESSION [None]
  - TRAUMATIC ARTHRITIS [None]
  - ARTHRALGIA [None]
